FAERS Safety Report 8185613-6 (Version None)
Quarter: 2012Q1

REPORT INFORMATION
  Report Type: 
  Country: None (occurrence: None)
  Receive Date: 20120305
  Receipt Date: 20120229
  Transmission Date: 20120608
  Serious: Yes (Other)
  Sender: FDA-Public Use
  Company Number: US-PFIZER INC-2010004398

PATIENT
  Sex: Male
  Weight: 74.376 kg

DRUGS (2)
  1. GABAPENTIN [Suspect]
     Indication: CONVULSION
     Dosage: 300 MG, 3X/DAY
     Route: 048
     Dates: start: 20050101, end: 20080101
  2. LYRICA [Suspect]
     Indication: CONVULSION
     Dosage: 75 MG, SIX TIMES A DAY
     Route: 048
     Dates: start: 20080101

REACTIONS (12)
  - INTERVERTEBRAL DISC PROTRUSION [None]
  - FEELING ABNORMAL [None]
  - INFLUENZA LIKE ILLNESS [None]
  - PAIN [None]
  - HYPERTENSION [None]
  - TUNNEL VISION [None]
  - THINKING ABNORMAL [None]
  - MUSCLE SPASMS [None]
  - SOMNOLENCE [None]
  - LETHARGY [None]
  - LIMB DISCOMFORT [None]
  - BONE PAIN [None]
